FAERS Safety Report 5845861-4 (Version None)
Quarter: 2008Q3

REPORT INFORMATION
  Report Type: 
  Country: None (occurrence: None)
  Receive Date: 20080814
  Receipt Date: 20080807
  Transmission Date: 20090109
  Serious: No
  Sender: FDA-Public Use
  Company Number: JP-BOEHRINGER INGELHEIM GMBH, GERMANY-2008-BP-11983NB

PATIENT
  Age: 86 Year
  Sex: Female

DRUGS (9)
  1. MOBIC [Suspect]
     Indication: ANALGESIA
     Route: 048
     Dates: start: 20080530, end: 20080627
  2. HERBESSER R [Concomitant]
     Route: 065
  3. WARFARIN SODIUM [Concomitant]
     Route: 065
  4. MICARDIS [Concomitant]
     Route: 048
  5. ASPIRIN [Concomitant]
     Route: 065
  6. TAKEPRON [Concomitant]
     Route: 065
  7. DIGOSIN [Concomitant]
     Route: 065
  8. GLIMICRON [Concomitant]
     Route: 065
  9. MERISLON [Concomitant]
     Route: 065

REACTIONS (2)
  - ANGIOEDEMA [None]
  - RASH [None]
